FAERS Safety Report 4750693-4 (Version None)
Quarter: 2005Q3

REPORT INFORMATION
  Report Type: 
  Country: None (occurrence: None)
  Receive Date: 20050823
  Receipt Date: 20050422
  Transmission Date: 20060218
  Serious: Yes (Hospitalization)
  Sender: FDA-Public Use
  Company Number: FR-BRISTOL-MYERS SQUIBB COMPANY-12949384

PATIENT
  Age: 54 Year
  Sex: Male

DRUGS (3)
  1. ENDOXAN [Suspect]
     Indication: MULTIPLE MYELOMA
     Route: 042
     Dates: start: 20050120, end: 20050120
  2. NEUPOGEN [Concomitant]
     Dates: start: 20050101, end: 20050101
  3. UROMITEXAN [Concomitant]
     Dates: start: 20050101, end: 20050101

REACTIONS (9)
  - ANTINUCLEAR ANTIBODY POSITIVE [None]
  - CHOLECYSTITIS CHRONIC [None]
  - CHOLELITHIASIS [None]
  - CYTOLYTIC HEPATITIS [None]
  - HAEMANGIOMA [None]
  - HAPTOGLOBIN ABNORMAL [None]
  - PLATELET COUNT DECREASED [None]
  - SMOOTH MUSCLE ANTIBODY POSITIVE [None]
  - TRANSAMINASES INCREASED [None]
